FAERS Safety Report 8234452-6 (Version None)
Quarter: 2012Q1

REPORT INFORMATION
  Report Type: 
  Country: None (occurrence: None)
  Receive Date: 20120326
  Receipt Date: 20120314
  Transmission Date: 20120608
  Serious: No
  Sender: FDA-Public Use
  Company Number: FR-ROCHE-1047438

PATIENT
  Sex: Female
  Weight: 76.09 kg

DRUGS (9)
  1. CHONDROSULF [Concomitant]
  2. LUCENTIS [Suspect]
     Route: 050
     Dates: start: 20120119
  3. ANTALGIL [Concomitant]
  4. OXYBUTYNIN [Concomitant]
  5. LUCENTIS [Suspect]
     Route: 050
     Dates: start: 20111214
  6. LUCENTIS [Suspect]
     Indication: AGE-RELATED MACULAR DEGENERATION
     Route: 050
     Dates: start: 20111102
  7. SIMVASTATIN [Concomitant]
  8. CALCIUM CARBONATE [Concomitant]
  9. ANTIGLAUCOMA AGENTS [Concomitant]

REACTIONS (4)
  - TRANSIENT ISCHAEMIC ATTACK [None]
  - VISION BLURRED [None]
  - EYE PAIN [None]
  - DRUG INEFFECTIVE [None]
